FAERS Safety Report 10313571 (Version 1)
Quarter: 2014Q3

REPORT INFORMATION
  Report Type: Spontaneous
  Country: US (occurrence: US)
  Receive Date: 20140718
  Receipt Date: 20140718
  Transmission Date: 20150326
  Serious: Yes (Other)
  Sender: FDA-Public Use
  Company Number: US-AMGEN-USASP2014053568

PATIENT
  Age: 64 Year
  Sex: Female

DRUGS (1)
  1. ENBREL [Suspect]
     Active Substance: ETANERCEPT
     Indication: PSORIATIC ARTHROPATHY
     Dosage: 25MG TWICE WEEKLY
     Route: 065
     Dates: start: 20051230, end: 20140611

REACTIONS (2)
  - Tremor [Not Recovered/Not Resolved]
  - Cyst [Not Recovered/Not Resolved]
